FAERS Safety Report 24967228 (Version 1)
Quarter: 2025Q1

REPORT INFORMATION
  Report Type: Report from Study
  Country: IE (occurrence: IE)
  Receive Date: 20250213
  Receipt Date: 20250213
  Transmission Date: 20250409
  Serious: Yes (Other)
  Sender: NOVARTIS
  Company Number: IE-002147023-NVSC2025IE024837

PATIENT
  Age: 45 Year
  Sex: Male

DRUGS (1)
  1. KESIMPTA [Suspect]
     Active Substance: OFATUMUMAB
     Indication: Relapsing-remitting multiple sclerosis
     Route: 058
     Dates: start: 20241023

REACTIONS (2)
  - Chest discomfort [Not Recovered/Not Resolved]
  - Cardiac discomfort [Not Recovered/Not Resolved]

NARRATIVE: CASE EVENT DATE: 20250211
